FAERS Safety Report 9690571 (Version 2)
Quarter: 2013Q4

REPORT INFORMATION
  Report Type: Spontaneous
  Country: FR (occurrence: None)
  Receive Date: 20131113
  Receipt Date: 20131226
  Transmission Date: 20140711
  Serious: Yes (Other)
  Sender: FDA-Public Use
  Company Number: NGX_01980_2013

PATIENT
  Age: 53 Year
  Sex: Male
  Weight: 115 kg

DRUGS (8)
  1. QUTENZA [Suspect]
     Indication: NEURALGIA
     Dosage: (1DF, [PATCH] (TOPICAL)
     Route: 061
     Dates: start: 20130906, end: 20130906
  2. DEPAKINE /00228501/ [Concomitant]
  3. NEURONTIN [Concomitant]
  4. CYMBALTA [Concomitant]
  5. RIVOTRIL [Concomitant]
  6. ALEPSAL [Concomitant]
  7. INIPOMP [Concomitant]
  8. TAHOR [Concomitant]

REACTIONS (7)
  - Application site discolouration [None]
  - Burns second degree [None]
  - Application site burn [None]
  - Application site scar [None]
  - Application site pain [None]
  - Application site vesicles [None]
  - Eschar [None]
